FAERS Safety Report 5135931-0 (Version None)
Quarter: 2006Q4

REPORT INFORMATION
  Report Type: 
  Country: None (occurrence: None)
  Receive Date: 20061019
  Receipt Date: 20061018
  Transmission Date: 20070319
  Serious: Yes (Hospitalization, Other)
  Sender: FDA-Public Use
  Company Number: ITWYE266618OCT06

PATIENT
  Age: 62 Year
  Sex: Male

DRUGS (5)
  1. PIPERACILLIN AND TAZOBACTAM [Suspect]
     Indication: PNEUMONIA LEGIONELLA
     Dosage: 2.25 G 4X PER 1 DAY INTRAVENOUS
     Route: 042
     Dates: start: 20060929, end: 20061009
  2. LEVOFLOXACIN (LEVOFLOXACIN, , 0) [Suspect]
     Indication: PNEUMONIA LEGIONELLA
     Dosage: 500 MG 1X PER 1 DAY INTRAVENOUS
     Route: 042
     Dates: start: 20060926, end: 20061009
  3. ALLOPURIONL (ALLOPURINOL) [Concomitant]
  4. PEPTAZOL (PANTOPRAZOLE) [Concomitant]
  5. TARGOSID (TEICOPLANIN) [Concomitant]

REACTIONS (2)
  - INTRACARDIAC THROMBUS [None]
  - THROMBOCYTHAEMIA [None]
